FAERS Safety Report 16246077 (Version 3)
Quarter: 2020Q1

REPORT INFORMATION
  Report Type: Report from Study
  Country: US (occurrence: US)
  Receive Date: 20190426
  Receipt Date: 20200306
  Transmission Date: 20200409
  Serious: Yes (Hospitalization)
  Sender: FDA-Public Use
  Company Number: US-ACTELION-A-NJ2019-188283

PATIENT
  Sex: Female

DRUGS (2)
  1. OPSUMIT [Suspect]
     Active Substance: MACITENTAN
     Indication: PULMONARY ARTERIAL HYPERTENSION
     Dosage: 10 MG, QD
     Route: 048
     Dates: start: 20150109
  2. ADCIRCA [Concomitant]
     Active Substance: TADALAFIL

REACTIONS (7)
  - Nerve compression [Unknown]
  - Back pain [Unknown]
  - Hypoacusis [Unknown]
  - Fall [Unknown]
  - Head injury [Unknown]
  - Pain in extremity [Unknown]
  - Gout [Unknown]
